FAERS Safety Report 4338287-6 (Version None)
Quarter: 2004Q2

REPORT INFORMATION
  Report Type: 
  Country: None (occurrence: None)
  Receive Date: 20040414
  Receipt Date: 20040402
  Transmission Date: 20050107
  Serious: Yes (Death)
  Sender: FDA-Public Use
  Company Number: DK-BRISTOL-MYERS SQUIBB COMPANY-12555314

PATIENT
  Age: 51 Year
  Sex: Male

DRUGS (2)
  1. EFAVIRENZ TABS 600 MG [Suspect]
     Indication: HIV INFECTION
     Route: 048
     Dates: start: 19991101, end: 20040221
  2. COMBIVIR [Suspect]
     Indication: HIV INFECTION
     Dosage: DOSAGE FROM: TABLET
     Route: 048
     Dates: start: 19991101, end: 20040221

REACTIONS (1)
  - DEATH [None]
